FAERS Safety Report 12672566 (Version 1)
Quarter: 2016Q3

REPORT INFORMATION
  Report Type: Spontaneous
  Country: US (occurrence: US)
  Receive Date: 20160822
  Receipt Date: 20160822
  Transmission Date: 20161109
  Serious: No
  Sender: FDA-Public Use
  Company Number: US-JNJFOC-20160708084

PATIENT
  Sex: Female
  Weight: 58.97 kg

DRUGS (2)
  1. WOMENS ROGAINE UNSCENTED [Suspect]
     Active Substance: MINOXIDIL
     Route: 047
  2. WOMENS ROGAINE UNSCENTED [Suspect]
     Active Substance: MINOXIDIL
     Indication: ACCIDENTAL EXPOSURE TO PRODUCT
     Route: 047
     Dates: start: 20160518

REACTIONS (2)
  - Product formulation issue [Unknown]
  - Accidental exposure to product [Unknown]
